FAERS Safety Report 8585819-8 (Version None)
Quarter: 2012Q3

REPORT INFORMATION
  Report Type: 
  Country: None (occurrence: None)
  Receive Date: 20120810
  Receipt Date: 20120803
  Transmission Date: 20120928
  Serious: Yes (Other)
  Sender: FDA-Public Use
  Company Number: US-ELI_LILLY_AND_COMPANY-US201008000319

PATIENT
  Sex: Female

DRUGS (3)
  1. FORTEO [Suspect]
     Indication: OSTEOPOROSIS
     Dosage: 20 UG, DAILY (1/D)
     Dates: start: 20100716
  2. FORTEO [Suspect]
     Dosage: 20 UG, QD
     Dates: start: 20100716
  3. PREDNISONE TAB [Concomitant]

REACTIONS (5)
  - WEIGHT INCREASED [None]
  - ULCER HAEMORRHAGE [None]
  - INJECTION SITE ERYTHEMA [None]
  - MALAISE [None]
  - DRUG DOSE OMISSION [None]
